FAERS Safety Report 8229364-8 (Version None)
Quarter: 2012Q1

REPORT INFORMATION
  Report Type: 
  Country: None (occurrence: None)
  Receive Date: 20120322
  Receipt Date: 20120315
  Transmission Date: 20120608
  Serious: Yes (Hospitalization)
  Sender: FDA-Public Use
  Company Number: US-ABBOTT-12P-163-0915967-00

PATIENT
  Sex: Female
  Weight: 46.308 kg

DRUGS (2)
  1. SYNTHROID [Suspect]
     Indication: HYPOTHYROIDISM
     Dates: start: 20120101
  2. SYNTHROID [Suspect]
     Indication: HYPOTHYROIDISM
     Dosage: ALTERNATES 125MCG/112MCG EVERY OTHER DAY
     Dates: end: 20120101

REACTIONS (15)
  - GASTRIC ULCER [None]
  - POST GASTRIC SURGERY SYNDROME [None]
  - FREQUENT BOWEL MOVEMENTS [None]
  - HOSPITALISATION [None]
  - SINUSITIS [None]
  - ALOPECIA [None]
  - FEELING ABNORMAL [None]
  - FOOD ALLERGY [None]
  - GASTRITIS [None]
  - MALABSORPTION [None]
  - DEHYDRATION [None]
  - SINUS CONGESTION [None]
  - IRRITABLE BOWEL SYNDROME [None]
  - WEIGHT DECREASED [None]
  - ARTHRALGIA [None]
